FAERS Safety Report 5673851-3 (Version None)
Quarter: 2008Q2

REPORT INFORMATION
  Report Type: 
  Country: None (occurrence: None)
  Receive Date: 20080226
  Receipt Date: 20070109
  Transmission Date: 20081010
  Serious: Yes (Other)
  Sender: FDA-Public Use
  Company Number: 466451

PATIENT
  Age: 15 Year
  Sex: Male

DRUGS (1)
  1. ACCUTANE [Suspect]
     Indication: DRUG USE FOR UNKNOWN INDICATION
     Dates: start: 20060719, end: 20061010

REACTIONS (4)
  - ABDOMINAL PAIN [None]
  - LYMPHADENITIS [None]
  - LYMPHADENOPATHY [None]
  - PAIN [None]
